FAERS Safety Report 26137307 (Version 1)
Quarter: 2025Q4

REPORT INFORMATION
  Report Type: Spontaneous
  Country: US (occurrence: US)
  Receive Date: 20251209
  Receipt Date: 20251209
  Transmission Date: 20260118
  Serious: Yes (Life-Threatening, Hospitalization, Other)
  Sender: GRIFOLS
  Company Number: US-IGSA-BIG0039981

PATIENT
  Age: 45 Year
  Sex: Male

DRUGS (3)
  1. HUMAN IMMUNOGLOBULIN G [Suspect]
     Active Substance: HUMAN IMMUNOGLOBULIN G
     Indication: Product used for unknown indication
     Dosage: UNK
  2. CYCLOSPORINE [Concomitant]
     Active Substance: CYCLOSPORINE
     Indication: Renal transplant
  3. PREDNISONE [Concomitant]
     Active Substance: PREDNISONE
     Indication: Renal transplant

REACTIONS (7)
  - Respiratory distress [Recovered/Resolved]
  - Pulmonary oedema [Recovered/Resolved]
  - Endotracheal intubation [Recovered/Resolved]
  - Cardiac arrest [Recovered/Resolved]
  - Pulmonary air leakage [Recovered/Resolved]
  - Hypovolaemic shock [Recovered/Resolved]
  - Capillary leak syndrome [Recovered/Resolved]
